FAERS Safety Report 9265747 (Version 1)
Quarter: 2013Q2

REPORT INFORMATION
  Report Type: Spontaneous
  Country: FR (occurrence: FR)
  Receive Date: 20130501
  Receipt Date: 20130501
  Transmission Date: 20140414
  Serious: Yes (Hospitalization)
  Sender: FDA-Public Use
  Company Number: FR-ABBOTT-13P-056-1082539-00

PATIENT
  Age: 50 Year
  Sex: Male

DRUGS (7)
  1. NORVIR [Suspect]
     Indication: HEPATITIS C
     Route: 048
     Dates: start: 201109, end: 20120215
  2. PEGASYS [Suspect]
     Indication: HEPATITIS C
     Route: 058
     Dates: start: 201109, end: 20120215
  3. PEGASYS [Suspect]
     Route: 058
     Dates: start: 201004, end: 201102
  4. COPEGUS [Suspect]
     Indication: HEPATITIS C
     Route: 048
     Dates: start: 201109, end: 20120215
  5. COPEGUS [Suspect]
     Dates: start: 201004, end: 201102
  6. ERO 5024048 (ANTI POLYMERASE) [Concomitant]
     Indication: HEPATITIS C
     Dates: start: 201109
  7. DANOPREVIR [Concomitant]
     Indication: HEPATITIS C
     Dates: start: 201109

REACTIONS (3)
  - Porphyria non-acute [Recovered/Resolved with Sequelae]
  - Haemochromatosis [Unknown]
  - Hypertrichosis [Unknown]
